FAERS Safety Report 5795291-9 (Version None)
Quarter: 2008Q2

REPORT INFORMATION
  Report Type: 
  Country: None (occurrence: None)
  Receive Date: 20080630
  Receipt Date: 20080616
  Transmission Date: 20081010
  Serious: Yes (Hospitalization)
  Sender: FDA-Public Use
  Company Number: US-ELI_LILLY_AND_COMPANY-US200805006243

PATIENT
  Sex: Female

DRUGS (4)
  1. FORTEO [Suspect]
     Indication: OSTEOPOROSIS
     Dosage: 20 UG, DAILY (1/D)
     Dates: start: 20070101
  2. PREDNISONE [Concomitant]
  3. TRENTAL [Concomitant]
  4. VERAPAMIL [Concomitant]

REACTIONS (2)
  - CERVICOBRACHIAL SYNDROME [None]
  - SPONDYLITIS [None]
